FAERS Safety Report 17263257 (Version 1)
Quarter: 2020Q1

REPORT INFORMATION
  Report Type: Spontaneous
  Country: US (occurrence: US)
  Receive Date: 20200111
  Receipt Date: 20200111
  Transmission Date: 20200409
  Serious: Yes (Hospitalization)
  Sender: FDA-Public Use
  Company Number: None

PATIENT
  Age: 9 Week
  Sex: Male
  Weight: 8.55 kg

DRUGS (1)
  1. RANITIDINE. [Suspect]
     Active Substance: RANITIDINE
     Indication: LARYNGOMALACIA
     Dosage: ?          QUANTITY:1.1 MILLILITERS;?
     Route: 048
     Dates: start: 20190103, end: 20190425

REACTIONS (3)
  - Nephroblastoma [None]
  - Nephrectomy [None]
  - Renal neoplasm [None]

NARRATIVE: CASE EVENT DATE: 20190228
